FAERS Safety Report 6179059-X (Version None)
Quarter: 2009Q2

REPORT INFORMATION
  Report Type: 
  Country: None (occurrence: None)
  Receive Date: 20090505
  Receipt Date: 20090424
  Transmission Date: 20091009
  Serious: Yes (Other)
  Sender: FDA-Public Use
  Company Number: PHHY2009BR15808

PATIENT
  Age: 38 Year
  Sex: Female
  Weight: 40 kg

DRUGS (1)
  1. LEPONEX [Suspect]
     Indication: SCHIZOPHRENIA
     Dosage: 3 DF
     Route: 048
     Dates: start: 20070101

REACTIONS (9)
  - ANAEMIA [None]
  - COUGH [None]
  - NEUTROPHIL COUNT INCREASED [None]
  - PLATELET COUNT INCREASED [None]
  - PNEUMONIA [None]
  - PYREXIA [None]
  - TUBERCULOSIS [None]
  - WEIGHT DECREASED [None]
  - WHITE BLOOD CELL COUNT INCREASED [None]
